FAERS Safety Report 17924413 (Version 2)
Quarter: 2020Q3

REPORT INFORMATION
  Report Type: Other
  Country: US (occurrence: US)
  Receive Date: 20200622
  Receipt Date: 20200921
  Transmission Date: 20201103
  Serious: No
  Sender: FDA-Public Use
  Company Number: US-ACORDA-ACO_165319_2020

PATIENT
  Sex: Female

DRUGS (3)
  1. INBRIJA [Suspect]
     Active Substance: LEVODOPA
     Indication: ON AND OFF PHENOMENON
     Dosage: 84 MILLIGRAM, AS NEEDED (NOT TO EXCEED 5 DOSES A DAY)
     Dates: start: 20200610
  2. RYTARY [Concomitant]
     Active Substance: CARBIDOPA\LEVODOPA
     Indication: PRODUCT USED FOR UNKNOWN INDICATION
     Dosage: 36.25/145MG, 2 PILLS EVERY 4 HOURS
     Route: 065
  3. INBRIJA [Suspect]
     Active Substance: LEVODOPA
     Indication: PARKINSON^S DISEASE

REACTIONS (16)
  - Drug ineffective [Unknown]
  - Cough [Unknown]
  - Balance disorder [Unknown]
  - Hallucination [Unknown]
  - Device issue [Unknown]
  - Feeling abnormal [Unknown]
  - Sputum discoloured [Unknown]
  - Vomiting [Unknown]
  - Oropharyngeal pain [Unknown]
  - Nausea [Unknown]
  - Retching [Unknown]
  - Lacrimation increased [Unknown]
  - Rhinorrhoea [Unknown]
  - Tremor [Not Recovered/Not Resolved]
  - Eye irritation [Unknown]
  - Device difficult to use [Unknown]
